FAERS Safety Report 16034105 (Version 1)
Quarter: 2019Q1

REPORT INFORMATION
  Report Type: Spontaneous
  Country: US (occurrence: US)
  Receive Date: 20190305
  Receipt Date: 20190305
  Transmission Date: 20190418
  Serious: No
  Sender: FDA-Public Use
  Company Number: US-IMPAX LABORATORIES, LLC-2018-IPXL-02711

PATIENT
  Age: 74 Year
  Sex: Female

DRUGS (1)
  1. RYTARY [Suspect]
     Active Substance: CARBIDOPA\LEVODOPA
     Indication: PRODUCT USED FOR UNKNOWN INDICATION
     Dosage: 48.75/195MG, 13CAPSULE(3CAP AT 7AM, 2 CAPS AT 10AM, 3 CAP AT 1PM, 2 CAP AT 4PM, 3CAP AT 7PM), DAILY
     Route: 065
     Dates: start: 2015

REACTIONS (1)
  - Prescribed overdose [Unknown]
